FAERS Safety Report 6189342-X (Version None)
Quarter: 2009Q2

REPORT INFORMATION
  Report Type: 
  Country: None (occurrence: None)
  Receive Date: 20090512
  Receipt Date: 20090422
  Transmission Date: 20091009
  Serious: Yes (Life-Threatening, Hospitalization, Other)
  Sender: FDA-Public Use
  Company Number: ADE# 09-136DPR

PATIENT
  Age: 57 Year
  Sex: Male

DRUGS (6)
  1. DIGOXIN [Suspect]
     Indication: CARDIAC DISORDER
     Dosage: ONCE A DAY
  2. CARVEDILOL [Concomitant]
  3. LISINOPRIL [Concomitant]
  4. COREG 80MG [Concomitant]
  5. DYTORIN 10-80MG [Concomitant]
  6. MECILIZINE 25MG [Concomitant]

REACTIONS (16)
  - BLOOD PRESSURE IMMEASURABLE [None]
  - CARDIAC DISORDER [None]
  - CARDIOACTIVE DRUG LEVEL DECREASED [None]
  - CARDIOACTIVE DRUG LEVEL INCREASED [None]
  - DIZZINESS [None]
  - DRUG INEFFECTIVE [None]
  - FLUID RETENTION [None]
  - HYPOTENSION [None]
  - LOSS OF CONSCIOUSNESS [None]
  - NAUSEA [None]
  - OEDEMA [None]
  - PALLOR [None]
  - PERICARDIAL EFFUSION [None]
  - PLEURAL EFFUSION [None]
  - URINE OUTPUT DECREASED [None]
  - VOMITING [None]
